FAERS Safety Report 17198951 (Version 2)
Quarter: 2020Q1

REPORT INFORMATION
  Report Type: Spontaneous
  Country: RU (occurrence: RU)
  Receive Date: 20191225
  Receipt Date: 20200204
  Transmission Date: 20200409
  Serious: Yes (Other)
  Sender: FDA-Public Use
  Company Number: NVSC2019RU077027

PATIENT

DRUGS (1)
  1. CANAKINUMAB. [Suspect]
     Active Substance: CANAKINUMAB
     Indication: STILL^S DISEASE
     Dosage: UNK
     Route: 065

REACTIONS (1)
  - Haemophagocytic lymphohistiocytosis [Unknown]
